FAERS Safety Report 9170786 (Version 1)
Quarter: 2013Q1

REPORT INFORMATION
  Report Type: Spontaneous
  Country: US (occurrence: None)
  Receive Date: 20130315
  Receipt Date: 20130315
  Transmission Date: 20140127
  Serious: Yes (Hospitalization)
  Sender: FDA-Public Use
  Company Number: None

PATIENT
  Age: 43 Year
  Sex: Male
  Weight: 125 kg

DRUGS (2)
  1. OXALIPLATIN [Suspect]
     Indication: COLON CANCER
     Dosage: Q 2 WEEKS  IVPE
  2. LEUCOVORIN [Suspect]
     Dosage: Q 2 WEEKS IVPE

REACTIONS (1)
  - Infusion site swelling [None]
